FAERS Safety Report 6893646-2 (Version None)
Quarter: 2010Q3

REPORT INFORMATION
  Report Type: 
  Country: None (occurrence: None)
  Receive Date: 20100731
  Receipt Date: 20091105
  Transmission Date: 20110219
  Serious: No
  Sender: FDA-Public Use
  Company Number: US-PFIZER INC-2009272596

PATIENT
  Sex: Female
  Weight: 64.853 kg

DRUGS (4)
  1. LIPITOR [Suspect]
     Indication: BLOOD CHOLESTEROL INCREASED
     Dosage: 10 MG, 1X/DAY
     Route: 048
  2. LIPITOR [Suspect]
     Dosage: 20 MG, UNK
  3. ZOCOR [Suspect]
     Indication: BLOOD CHOLESTEROL INCREASED
  4. TOPROL-XL [Concomitant]
     Indication: CARDIAC DISORDER
     Dosage: 50 MG, UNK
     Route: 048

REACTIONS (2)
  - MUSCULAR WEAKNESS [None]
  - PAIN [None]
